FAERS Safety Report 13644577 (Version 1)
Quarter: 2017Q2

REPORT INFORMATION
  Report Type: Spontaneous
  Country: US (occurrence: US)
  Receive Date: 20170612
  Receipt Date: 20170612
  Transmission Date: 20170830
  Serious: No
  Sender: FDA-Public Use
  Company Number: US-ROCHE-705192

PATIENT
  Age: 64 Year
  Sex: Female
  Weight: 95.5 kg

DRUGS (11)
  1. LASIX [Concomitant]
     Active Substance: FUROSEMIDE
     Indication: POLYURIA
     Route: 065
  2. ALBUTEROL. [Concomitant]
     Active Substance: ALBUTEROL
     Indication: ASTHMA
     Dosage: DOSE: 1 PUFF 4 TIMES A DAY
     Route: 065
  3. XELODA [Suspect]
     Active Substance: CAPECITABINE
     Route: 048
  4. ENALAPRIL [Concomitant]
     Active Substance: ENALAPRIL
     Indication: HYPERTENSION
     Route: 048
  5. PYRIDOXIN [Concomitant]
     Active Substance: PYRIDOXINE
     Indication: SKIN LESION
     Route: 048
  6. PYRIDOXIN [Concomitant]
     Active Substance: PYRIDOXINE
     Route: 048
  7. LOVASTATIN. [Concomitant]
     Active Substance: LOVASTATIN
     Indication: HYPERLIPIDAEMIA
     Route: 048
  8. REGLAN [Concomitant]
     Active Substance: METOCLOPRAMIDE HYDROCHLORIDE
     Indication: VOMITING
     Route: 048
  9. DOXEPIN [Concomitant]
     Active Substance: DOXEPIN
     Indication: DEPRESSION
     Dosage: FREQUENCY: AT NIGHT AS NEEDED
     Route: 048
  10. XELODA [Suspect]
     Active Substance: CAPECITABINE
     Indication: COLON CANCER
     Route: 048
  11. OXALIPLATIN. [Concomitant]
     Active Substance: OXALIPLATIN
     Indication: COLON CANCER
     Dosage: FORM: INFUSION
     Route: 042

REACTIONS (5)
  - Temperature intolerance [Recovered/Resolved]
  - Dyspnoea [Recovered/Resolved]
  - Nervousness [Unknown]
  - Heart rate increased [Recovered/Resolved]
  - Throat irritation [Recovered/Resolved]

NARRATIVE: CASE EVENT DATE: 201004
